FAERS Safety Report 7426204-1 (Version None)
Quarter: 2011Q2

REPORT INFORMATION
  Report Type: 
  Country: None (occurrence: None)
  Receive Date: 20110420
  Receipt Date: 20110419
  Transmission Date: 20111010
  Serious: Yes (Death)
  Sender: FDA-Public Use
  Company Number: PHHY2011US16655

PATIENT
  Sex: Male

DRUGS (2)
  1. THALOMID [Suspect]
  2. EXJADE [Suspect]
     Dosage: 2000 MG, UNK
     Route: 048
     Dates: end: 20100601

REACTIONS (2)
  - POLYCYTHAEMIA [None]
  - MYELOFIBROSIS [None]
